FAERS Safety Report 10771913 (Version 2)
Quarter: 2015Q4

REPORT INFORMATION
  Report Type: Spontaneous
  Country: US (occurrence: US)
  Receive Date: 20150206
  Receipt Date: 20151223
  Transmission Date: 20160304
  Serious: Yes (Other)
  Sender: FDA-Public Use
  Company Number: US-JAZZ-2014-US-014535

PATIENT
  Age: 56 Year
  Sex: Female
  Weight: 65.31 kg

DRUGS (21)
  1. XYREM [Suspect]
     Active Substance: SODIUM OXYBATE
     Dosage: 3.75 G, FIRST DOSE
     Route: 048
     Dates: start: 201212
  2. KLONOPIN [Concomitant]
     Active Substance: CLONAZEPAM
     Indication: PRODUCT USED FOR UNKNOWN INDICATION
     Dosage: UNK
     Dates: start: 20151201
  3. PROVIGIL [Concomitant]
     Active Substance: MODAFINIL
     Indication: PRODUCT USED FOR UNKNOWN INDICATION
     Dosage: UNK
     Dates: start: 20010101, end: 20140821
  4. SYNTHROID [Concomitant]
     Active Substance: LEVOTHYROXINE SODIUM
     Indication: PRODUCT USED FOR UNKNOWN INDICATION
     Dosage: UNK
     Dates: start: 20151201
  5. ATENOLOL. [Concomitant]
     Active Substance: ATENOLOL
     Indication: PRODUCT USED FOR UNKNOWN INDICATION
     Dosage: UNK
     Dates: start: 20010101, end: 20151208
  6. PROTONIX [Concomitant]
     Active Substance: PANTOPRAZOLE SODIUM
     Indication: PRODUCT USED FOR UNKNOWN INDICATION
     Dosage: UNK
     Dates: start: 20010101, end: 20151208
  7. XYREM [Suspect]
     Active Substance: SODIUM OXYBATE
     Dosage: DOSE ADJUSTMENTS
     Route: 048
  8. CELEXA [Concomitant]
     Active Substance: CITALOPRAM HYDROBROMIDE
     Dosage: UNK
     Dates: start: 20151201, end: 20151208
  9. VIVELLE-DOT [Concomitant]
     Active Substance: ESTRADIOL
     Indication: PRODUCT USED FOR UNKNOWN INDICATION
     Dosage: UNK
  10. ORACEA [Concomitant]
     Active Substance: DOXYCYCLINE
     Indication: PRODUCT USED FOR UNKNOWN INDICATION
     Dosage: 1 DF, QD
     Route: 048
     Dates: start: 20151201
  11. PROGESTERONE. [Concomitant]
     Active Substance: PROGESTERONE
     Indication: PRODUCT USED FOR UNKNOWN INDICATION
     Dosage: UNK
     Route: 048
  12. LIPITOR [Concomitant]
     Active Substance: ATORVASTATIN CALCIUM
     Indication: PRODUCT USED FOR UNKNOWN INDICATION
     Dosage: UNK
     Dates: start: 20151201
  13. LEXAPRO [Concomitant]
     Active Substance: ESCITALOPRAM OXALATE
     Indication: PRODUCT USED FOR UNKNOWN INDICATION
     Dosage: UNK
     Dates: start: 20150820
  14. DIOVAN [Concomitant]
     Active Substance: VALSARTAN
     Indication: PRODUCT USED FOR UNKNOWN INDICATION
     Dosage: UNK
     Dates: start: 20151201
  15. CELEXA [Concomitant]
     Active Substance: CITALOPRAM HYDROBROMIDE
     Indication: PRODUCT USED FOR UNKNOWN INDICATION
     Dosage: UNK
     Dates: start: 20150820, end: 20150820
  16. XYREM [Suspect]
     Active Substance: SODIUM OXYBATE
     Indication: NARCOLEPSY
     Dosage: 2.25 G, BID
     Route: 048
     Dates: start: 200906, end: 2009
  17. XYREM [Suspect]
     Active Substance: SODIUM OXYBATE
     Dosage: 4.75 G, SECOND DOSE
     Route: 048
     Dates: start: 201212
  18. PROVIGIL [Concomitant]
     Active Substance: MODAFINIL
     Dosage: UNK
     Dates: start: 20151201
  19. POTASSIUM [Concomitant]
     Active Substance: POTASSIUM
     Indication: PRODUCT USED FOR UNKNOWN INDICATION
     Dosage: UNK
     Dates: start: 20010101, end: 20151208
  20. SPIRONOLACTONE. [Concomitant]
     Active Substance: SPIRONOLACTONE
     Indication: PRODUCT USED FOR UNKNOWN INDICATION
     Dosage: UNK
     Dates: start: 20151201
  21. ROZEREM [Concomitant]
     Active Substance: RAMELTEON
     Indication: PRODUCT USED FOR UNKNOWN INDICATION
     Dosage: UNK
     Dates: start: 20010101, end: 20010101

REACTIONS (12)
  - Hypersomnia [Unknown]
  - Weight decreased [Not Recovered/Not Resolved]
  - Sleep apnoea syndrome [Not Recovered/Not Resolved]
  - Hypothyroidism [Not Recovered/Not Resolved]
  - Arthralgia [Not Recovered/Not Resolved]
  - Fatigue [Not Recovered/Not Resolved]
  - Somnolence [Not Recovered/Not Resolved]
  - Restless legs syndrome [Unknown]
  - Disturbance in attention [Not Recovered/Not Resolved]
  - Periodic limb movement disorder [Unknown]
  - Malaise [Not Recovered/Not Resolved]
  - Anxiety [Unknown]

NARRATIVE: CASE EVENT DATE: 20130923
